FAERS Safety Report 9688935 (Version 2)
Quarter: 2013Q4

REPORT INFORMATION
  Report Type: Report from Study
  Country: NL (occurrence: NL)
  Receive Date: 20131114
  Receipt Date: 20131119
  Transmission Date: 20140711
  Serious: Yes (Hospitalization)
  Sender: FDA-Public Use
  Company Number: NL-BAYER-2013-137695

PATIENT
  Age: 51 Year
  Sex: Male

DRUGS (2)
  1. BETAFERON [Suspect]
     Dosage: 250 ?G, QOD
  2. BETAFERON [Suspect]
     Dosage: 250 ?G, UNK
     Dates: start: 20130828

REACTIONS (2)
  - Myocardial infarction [Recovered/Resolved]
  - Chills [Recovered/Resolved]
